FAERS Safety Report 7316176-2 (Version None)
Quarter: 2011Q1

REPORT INFORMATION
  Report Type: 
  Country: None (occurrence: None)
  Receive Date: 20110225
  Receipt Date: 20110127
  Transmission Date: 20110831
  Serious: Yes (Death, Hospitalization)
  Sender: FDA-Public Use
  Company Number: PHHY2011DE04153

PATIENT
  Sex: Female
  Weight: 88 kg

DRUGS (9)
  1. ALISKIREN [Suspect]
     Indication: HYPERTENSION
     Dosage: 150 MG/D
     Route: 048
     Dates: start: 20081010
  2. AMITRIPTYLINE HCL [Concomitant]
     Dosage: 25 MG/D
     Dates: start: 20071001
  3. ACE INHIBITOR NOS [Concomitant]
  4. BISOPROLOL FUMARATE [Concomitant]
     Dosage: 5 MG/D
     Dates: start: 20080214
  5. BETA BLOCKING AGENTS [Concomitant]
  6. ORAL ANTIDIABETICS [Concomitant]
     Indication: DIABETES MELLITUS
  7. LEVOTHYROXINE SODIUM [Concomitant]
     Dosage: 150 UG/D
     Dates: start: 20071218
  8. EXFORGE [Suspect]
     Indication: HYPERTENSION
     Dosage: 80/5 MG
     Route: 048
     Dates: start: 20081010
  9. OMEPRAZOLE [Concomitant]
     Dosage: 20 MG/D
     Dates: start: 20071001

REACTIONS (1)
  - RECTAL CANCER [None]
